FAERS Safety Report 5124738-6 (Version None)
Quarter: 2006Q4

REPORT INFORMATION
  Report Type: 
  Country: None (occurrence: None)
  Receive Date: 20061006
  Receipt Date: 20060905
  Transmission Date: 20070319
  Serious: Yes (Death, Life-Threatening, Hospitalization)
  Sender: FDA-Public Use
  Company Number: 2006-143424-NL

PATIENT
  Age: 85 Year
  Sex: Female

DRUGS (10)
  1. DANAPAROID SODIUM [Suspect]
     Indication: DISSEMINATED INTRAVASCULAR COAGULATION
     Dosage: 1250 ANTI_XA, BID; INTRAVENOUS DRIP
     Route: 041
     Dates: start: 20051213, end: 20051228
  2. AMPICILLIN SODIUM/SULBACTAM SODIUM [Concomitant]
  3. CLINDAMYCIN PHOSPHAGE [Concomitant]
  4. MINOCYCLINE HYDROCHLORIDE [Concomitant]
  5. ARBEKACIN SULFATE [Concomitant]
  6. ANTITHROMBIN III [Concomitant]
  7. IMMUNE GLOBULIN INTRAVENOUS (HUMAN) [Concomitant]
  8. PHENYTOIN SODIUM [Concomitant]
  9. SIVELESTAT [Concomitant]
  10. MICAFUNGIN SODIUM [Concomitant]

REACTIONS (5)
  - ANAEMIA [None]
  - DISEASE PROGRESSION [None]
  - DISSEMINATED INTRAVASCULAR COAGULATION [None]
  - LUNG DISORDER [None]
  - PNEUMONIA [None]
